FAERS Safety Report 5515506-1 (Version None)
Quarter: 2007Q4

REPORT INFORMATION
  Report Type: 
  Country: None (occurrence: None)
  Receive Date: 20071113
  Receipt Date: 20070308
  Transmission Date: 20080405
  Serious: No
  Sender: FDA-Public Use
  Company Number: A0642462A

PATIENT
  Age: 76 Year
  Sex: Male

DRUGS (5)
  1. COREG [Suspect]
     Indication: ARRHYTHMIA
     Route: 048
     Dates: start: 20070101
  2. LIPITOR [Suspect]
     Indication: DRUG USE FOR UNKNOWN INDICATION
     Route: 065
  3. PLAVIX [Concomitant]
  4. AMIODARONE [Concomitant]
  5. AVAPRO [Concomitant]

REACTIONS (1)
  - BLOOD PRESSURE INCREASED [None]
